FAERS Safety Report 10384546 (Version 2)
Quarter: 2014Q3

REPORT INFORMATION
  Report Type: Spontaneous
  Country: US (occurrence: US)
  Receive Date: 20140814
  Receipt Date: 20140814
  Transmission Date: 20150326
  Serious: Yes (Hospitalization, Other)
  Sender: FDA-Public Use
  Company Number: US-009507513-2009-189966-NL

PATIENT
  Sex: Female
  Weight: 99.8 kg

DRUGS (3)
  1. ADVIL [Concomitant]
     Active Substance: IBUPROFEN
     Indication: HEADACHE
     Dosage: 2 DF, PRN
     Route: 048
     Dates: start: 20060713, end: 20060715
  2. NUVARING [Suspect]
     Active Substance: ETHINYL ESTRADIOL\ETONOGESTREL
     Indication: CONTRACEPTION
     Dosage: DOSE TEXT: 3 WEEKS PER MONTH, CONTINUING: NO
     Route: 067
     Dates: start: 200502, end: 20060716
  3. CLARITIN [Concomitant]
     Active Substance: LORATADINE
     Dosage: UNK UNK, PRN
     Route: 048

REACTIONS (9)
  - Nephrolithiasis [Unknown]
  - Microcytic anaemia [Recovered/Resolved]
  - Stress [Unknown]
  - Pulmonary embolism [Unknown]
  - Endometriosis [Unknown]
  - Headache [Unknown]
  - Deep vein thrombosis [Recovered/Resolved]
  - Ankle fracture [Unknown]
  - Rhinitis allergic [Unknown]

NARRATIVE: CASE EVENT DATE: 200604
